FAERS Safety Report 12218935 (Version 1)
Quarter: 2016Q1

REPORT INFORMATION
  Report Type: Spontaneous
  Country: FR (occurrence: FR)
  Receive Date: 20160329
  Receipt Date: 20160329
  Transmission Date: 20160526
  Serious: Yes (Hospitalization)
  Sender: FDA-Public Use
  Company Number: FR-ELI_LILLY_AND_COMPANY-FR201603006397

PATIENT
  Age: 69 Year
  Sex: Male

DRUGS (14)
  1. ONBREZ BREEZHALER [Concomitant]
     Active Substance: INDACATEROL
  2. ALLOPURINOL. [Concomitant]
     Active Substance: ALLOPURINOL
  3. GEMZAR [Suspect]
     Active Substance: GEMCITABINE HYDROCHLORIDE
     Indication: PROSTATE CANCER
     Dosage: UNK, UNKNOWN
     Route: 042
     Dates: start: 20160203, end: 20160210
  4. ATORVASTATINE                      /01326101/ [Concomitant]
     Active Substance: ATORVASTATIN
  5. SEROPLEX [Concomitant]
     Active Substance: ESCITALOPRAM OXALATE
  6. XANAX [Concomitant]
     Active Substance: ALPRAZOLAM
  7. COVERSYL                           /00790702/ [Concomitant]
     Active Substance: PERINDOPRIL
  8. KARDEGIC [Concomitant]
     Active Substance: ASPIRIN LYSINE
  9. CARBOPLATIN. [Suspect]
     Active Substance: CARBOPLATIN
     Indication: BLADDER CANCER
     Dosage: UNK, UNKNOWN
     Route: 042
     Dates: start: 20160203, end: 20160210
  10. INNOHEP [Concomitant]
     Active Substance: TINZAPARIN SODIUM
  11. LASILIX                            /00032601/ [Concomitant]
     Active Substance: FUROSEMIDE
  12. SERETIDE [Concomitant]
     Active Substance: FLUTICASONE FUROATE\SALMETEROL XINAFOATE
  13. XYZALL [Concomitant]
     Active Substance: LEVOCETIRIZINE DIHYDROCHLORIDE
  14. ESOMEPRAZOLE [Concomitant]
     Active Substance: ESOMEPRAZOLE

REACTIONS (10)
  - Thrombocytopenia [Recovered/Resolved]
  - Lymphopenia [Recovered/Resolved]
  - Pyrexia [Unknown]
  - Chills [Unknown]
  - Anaemia [Recovering/Resolving]
  - Epistaxis [Unknown]
  - Asthenia [Unknown]
  - Rectal haemorrhage [Unknown]
  - Vomiting [Unknown]
  - Dyspnoea [Unknown]

NARRATIVE: CASE EVENT DATE: 20160208
